FAERS Safety Report 6115296-8 (Version None)
Quarter: 2009Q1

REPORT INFORMATION
  Report Type: 
  Country: None (occurrence: None)
  Receive Date: 20090313
  Receipt Date: 20090306
  Transmission Date: 20090719
  Serious: Yes (Hospitalization)
  Sender: FDA-Public Use
  Company Number: NL-ASTRAZENECA-2009AC00765

PATIENT
  Sex: Male

DRUGS (7)
  1. NEXIUM [Suspect]
     Route: 065
  2. ACETYLSALICYLIC ACID [Concomitant]
     Dosage: 1 X 80
  3. LIPITOR [Concomitant]
     Dosage: 1 X 10
  4. PROMOCARD RETARD [Concomitant]
     Dosage: 1 X 60
  5. ADALAT [Concomitant]
     Dosage: 1 X 30
  6. ENALAPRIL [Concomitant]
     Dosage: 1 X 20
  7. COZAAR [Concomitant]
     Dosage: 1 X 100

REACTIONS (1)
  - GLOMERULONEPHRITIS MEMBRANOUS [None]
